FAERS Safety Report 11641630 (Version 1)
Quarter: 2015Q4

REPORT INFORMATION
  Report Type: Spontaneous
  Country: JP (occurrence: JP)
  Receive Date: 20151019
  Receipt Date: 20151019
  Transmission Date: 20160304
  Serious: Yes (Life-Threatening, Hospitalization)
  Sender: FDA-Public Use
  Company Number: JP-BAYER-2015-439606

PATIENT
  Age: 54 Year
  Sex: Female

DRUGS (2)
  1. ACETYLSALICYLIC ACID({=100 MG) [Interacting]
     Active Substance: ASPIRIN
     Dosage: UNK
     Route: 048
     Dates: start: 201503
  2. CLOPIDOGREL SULFATE [Suspect]
     Active Substance: CLOPIDOGREL BISULFATE
     Dosage: UNK
     Route: 048
     Dates: start: 201503

REACTIONS (7)
  - Altered state of consciousness [None]
  - Cerebral infarction [None]
  - Quadriplegia [None]
  - Cerebral haemorrhage [None]
  - Hydrocephalus [None]
  - Cerebral ventricular rupture [None]
  - Labelled drug-drug interaction medication error [None]

NARRATIVE: CASE EVENT DATE: 20150320
